FAERS Safety Report 26076249 (Version 1)
Quarter: 2025Q4

REPORT INFORMATION
  Report Type: Spontaneous
  Country: GB (occurrence: None)
  Receive Date: 20251121
  Receipt Date: 20251121
  Transmission Date: 20260118
  Serious: No
  Sender: Harrow Health
  Company Number: GB-HARROW-HAR-2025-GB-00160

PATIENT
  Age: 73 Year
  Sex: Female

DRUGS (16)
  1. VERKAZIA [Suspect]
     Active Substance: CYCLOSPORINE
     Indication: Ill-defined disorder
     Dosage: ONE DROP ONCE DAILY TO AFFECTED EYE
     Route: 047
     Dates: start: 20241125, end: 20250304
  2. ZAPAIN(CODEINE PHOSPHATE, PARACETAMOL) [Concomitant]
     Indication: Ill-defined disorder
  3. LANSOPRAZOLE [Concomitant]
     Active Substance: LANSOPRAZOLE
     Indication: Ill-defined disorder
     Dosage: TAKE ONE TO TWO (IF TOLERATED) ONCE DAILY
     Dates: start: 20250304, end: 20250401
  4. ZOPICLONE [Concomitant]
     Active Substance: ZOPICLONE
     Indication: Ill-defined disorder
     Dosage: TAKE ONE AT NIGHT TO HELP WITH SLEEP PRN, TRY T.
     Dates: start: 20250328, end: 20250425
  5. ATORVASTATIN [Concomitant]
     Active Substance: ATORVASTATIN
     Dosage: TAKE ONE DAILY (1 IN 1 D)
     Dates: start: 20241125
  6. BISOPROLOL [Concomitant]
     Active Substance: BISOPROLOL
     Indication: Ill-defined disorder
     Dosage: TAKE ONE DAILY (1 IN 1 D)
     Dates: start: 20241125, end: 20250304
  7. 3M CAVILON ANTIFUNGAL [Concomitant]
     Active Substance: MICONAZOLE NITRATE
     Indication: Ill-defined disorder
     Dosage: USE AS DIRECTED
     Dates: start: 20241125
  8. ESTRIOL [Concomitant]
     Active Substance: ESTRIOL
     Indication: Ill-defined disorder
     Dosage: APPLY AT NIGHT FOR 4 WEEKS, THEN REDUCE TO TWIC
     Dates: start: 20241125
  9. CALCIUM\CARBOXYMETHYLCELLULOSE\DEVICE\MAGNESIUM\POTASSIUM\SODIUM CL\SO [Concomitant]
     Active Substance: CALCIUM\CARBOXYMETHYLCELLULOSE\DEVICE\MAGNESIUM\POTASSIUM\SODIUM CL\SORBITOL
     Indication: Ill-defined disorder
     Dosage: USE AS DIRECTED
     Dates: start: 20241125
  10. HYLO NIGHT [Concomitant]
     Indication: Ill-defined disorder
     Dosage: USE AS DIRECTED
     Dates: start: 20241125, end: 20250212
  11. HYALURONATE SODIUM [Concomitant]
     Active Substance: HYALURONATE SODIUM
     Indication: Ill-defined disorder
     Dosage: ONE DAILY WHEN REQUIRED
     Dates: start: 20241125
  12. NITROFURANTOIN [Concomitant]
     Active Substance: NITROFURANTOIN
     Indication: Ill-defined disorder
     Dosage: ONE NIGHTLY AS PROPHYLAXIS FOR UTIS
     Dates: start: 20241125, end: 20250304
  13. QUININE BISULFATE [Concomitant]
     Active Substance: QUININE BISULFATE
     Indication: Ill-defined disorder
     Dosage: ONE AT NIGHT FOR CRAMPS
     Dates: start: 20241125
  14. VALUPAK VITAMIN D3 [Concomitant]
     Indication: Ill-defined disorder
     Dosage: TAKE ONE DAILY
     Dates: start: 20241125
  15. METHENAMINE HIPPURATE [Concomitant]
     Active Substance: METHENAMINE HIPPURATE
     Dosage: TAKE ONE TWICE DAILY (2 IN 1 D)
     Dates: start: 20250108
  16. HYLO DUAL INTENSE [Concomitant]
     Dosage: USE AS DIRECTED
     Dates: start: 20250212

REACTIONS (1)
  - Eye swelling [Recovered/Resolved]
